FAERS Safety Report 11898905 (Version 2)
Quarter: 2016Q1

REPORT INFORMATION
  Report Type: Spontaneous
  Country: JP (occurrence: JP)
  Receive Date: 20160108
  Receipt Date: 20160210
  Transmission Date: 20160526
  Serious: Yes (Hospitalization)
  Sender: FDA-Public Use
  Company Number: JP-SA-2016SA002571

PATIENT
  Age: 77 Year
  Sex: Female

DRUGS (7)
  1. AVAPRO [Suspect]
     Active Substance: IRBESARTAN
     Indication: HYPERTENSION
     Route: 048
     Dates: start: 20151218, end: 20151225
  2. DEPAS [Concomitant]
     Active Substance: ETIZOLAM
     Route: 048
  3. FELBINAC [Concomitant]
     Active Substance: FELBINAC
     Dosage: ROUTE: TD
  4. CONIEL [Suspect]
     Active Substance: BENIDIPINE HYDROCHLORIDE
     Route: 048
     Dates: start: 20151218, end: 20151225
  5. BIO-THREE [Concomitant]
     Active Substance: HERBALS
     Route: 048
  6. GASMOTIN [Concomitant]
     Active Substance: MOSAPRIDE CITRATE
     Route: 048
  7. VEMAS S [Concomitant]
     Route: 048

REACTIONS (1)
  - Rhabdomyolysis [Not Recovered/Not Resolved]

NARRATIVE: CASE EVENT DATE: 201512
